FAERS Safety Report 22108118 (Version 1)
Quarter: 2023Q1

REPORT INFORMATION
  Report Type: Report from Study
  Country: CO (occurrence: CO)
  Receive Date: 20230317
  Receipt Date: 20230317
  Transmission Date: 20230418
  Serious: Yes (Disabling)
  Sender: FDA-Public Use
  Company Number: CO-002147023-NVSC2023CO058888

PATIENT
  Sex: Female

DRUGS (1)
  1. LOSARTAN [Suspect]
     Active Substance: LOSARTAN
     Indication: Product used for unknown indication
     Dosage: 50 MG, Q12H (STARTED APPROXIMATELY 12 YEARS AGO)
     Route: 065

REACTIONS (5)
  - Back pain [Not Recovered/Not Resolved]
  - Movement disorder [Not Recovered/Not Resolved]
  - Gastritis [Not Recovered/Not Resolved]
  - Dysstasia [Not Recovered/Not Resolved]
  - Musculoskeletal discomfort [Not Recovered/Not Resolved]
